FAERS Safety Report 8373723-X (Version None)
Quarter: 2012Q2

REPORT INFORMATION
  Report Type: 
  Country: None (occurrence: None)
  Receive Date: 20120521
  Receipt Date: 20120511
  Transmission Date: 20120825
  Serious: Yes (Other)
  Sender: FDA-Public Use
  Company Number: JP-ASTRAZENECA-2012SE31042

PATIENT

DRUGS (2)
  1. CRESTOR [Suspect]
     Route: 048
  2. TENORMIN [Suspect]
     Dosage: 25
     Route: 048

REACTIONS (2)
  - PANCREATITIS ACUTE [None]
  - HYPERGLYCAEMIA [None]
